FAERS Safety Report 7393560-2 (Version None)
Quarter: 2011Q1

REPORT INFORMATION
  Report Type: 
  Country: None (occurrence: None)
  Receive Date: 20110331
  Receipt Date: 20110331
  Transmission Date: 20110831
  Serious: No
  Sender: FDA-Public Use
  Company Number: None

PATIENT
  Sex: Female
  Weight: 73.0291 kg

DRUGS (1)
  1. DEXILANT [Suspect]
     Indication: GASTROOESOPHAGEAL REFLUX DISEASE
     Dosage: 1 CAPSULE DAILY BEFORE BREAKFAST
     Dates: start: 20110201, end: 20110212

REACTIONS (10)
  - DYSGEUSIA [None]
  - DRY MOUTH [None]
  - ORAL PAIN [None]
  - CHEST PAIN [None]
  - OROPHARYNGEAL PAIN [None]
  - OESOPHAGEAL PAIN [None]
  - PAROSMIA [None]
  - UPPER-AIRWAY COUGH SYNDROME [None]
  - CHEST DISCOMFORT [None]
  - OESOPHAGEAL DISCOMFORT [None]
